FAERS Safety Report 4687366-2 (Version None)
Quarter: 2005Q2

REPORT INFORMATION
  Report Type: 
  Country: None (occurrence: None)
  Receive Date: 20050608
  Receipt Date: 20050526
  Transmission Date: 20051028
  Serious: Yes (Hospitalization, Other)
  Sender: FDA-Public Use
  Company Number: 2005080946

PATIENT
  Sex: Male
  Weight: 77.1115 kg

DRUGS (8)
  1. CELEBREX [Suspect]
     Indication: OSTEOARTHRITIS
  2. BEXTRA [Suspect]
     Indication: OSTEOARTHRITIS
  3. VIAGRA [Suspect]
     Indication: ERECTILE DYSFUNCTION
  4. VIOXX [Suspect]
     Indication: OSTEOARTHRITIS
  5. MOBIC [Suspect]
     Indication: OSTEOARTHRITIS
  6. THYROID TAB [Concomitant]
  7. ANTIHYPERTENSIVES (ANTIHYPERTENSIVES) [Concomitant]
  8. LIPITOR [Concomitant]

REACTIONS (6)
  - BLOOD PRESSURE ABNORMAL [None]
  - DRUG INEFFECTIVE [None]
  - ERECTILE DYSFUNCTION [None]
  - LOOSE BODY IN JOINT [None]
  - NEUROPATHY PERIPHERAL [None]
  - RENAL CELL CARCINOMA STAGE UNSPECIFIED [None]
